FAERS Safety Report 8131759-8 (Version None)
Quarter: 2012Q1

REPORT INFORMATION
  Report Type: 
  Country: None (occurrence: None)
  Receive Date: 20120103
  Receipt Date: 20110921
  Transmission Date: 20120608
  Serious: No
  Sender: FDA-Public Use
  Company Number: AE-2011-001723

PATIENT
  Age: 68 Year
  Sex: Male

DRUGS (6)
  1. INCIVEK [Suspect]
     Dosage: 2250 MG (750 MG,3 IN 1 D),ORAL
     Route: 048
     Dates: start: 20110916
  2. RIBAVIRIN [Concomitant]
  3. PROMAX [Concomitant]
  4. PROCARDIA [Concomitant]
  5. PEGASYS [Concomitant]
  6. LIPITOR [Concomitant]

REACTIONS (3)
  - NAUSEA [None]
  - FATIGUE [None]
  - DYSPNOEA [None]
